FAERS Safety Report 7289782-1 (Version None)
Quarter: 2011Q1

REPORT INFORMATION
  Report Type: 
  Country: None (occurrence: None)
  Receive Date: 20110214
  Receipt Date: 20110131
  Transmission Date: 20110831
  Serious: No
  Sender: FDA-Public Use
  Company Number: US-BIOGENIDEC-2011BI004659

PATIENT
  Age: 69 Year
  Sex: Female

DRUGS (7)
  1. TYSABRI [Suspect]
     Route: 042
     Dates: start: 20061016, end: 20090206
  2. TYSABRI [Suspect]
     Indication: MULTIPLE SCLEROSIS
     Route: 042
     Dates: start: 20091112
  3. AVONEX [Concomitant]
     Indication: MULTIPLE SCLEROSIS
     Route: 030
     Dates: start: 20050610, end: 20061220
  4. AVONEX [Concomitant]
     Route: 030
  5. AVONEX [Concomitant]
     Route: 030
  6. AVONEX [Concomitant]
     Route: 030
  7. TYSABRI [Suspect]
     Route: 042
     Dates: start: 20050203

REACTIONS (5)
  - BALANCE DISORDER [None]
  - DEPRESSION [None]
  - MULTIPLE SCLEROSIS [None]
  - FATIGUE [None]
  - GAIT DISTURBANCE [None]
